FAERS Safety Report 24910860 (Version 2)
Quarter: 2025Q1

REPORT INFORMATION
  Report Type: Spontaneous
  Country: US (occurrence: US)
  Receive Date: 20250131
  Receipt Date: 20250307
  Transmission Date: 20250408
  Serious: No
  Sender: EISAI
  Company Number: US-Eisai-EC-2025-182284

PATIENT
  Age: 70 Year
  Sex: Female

DRUGS (21)
  1. LEQEMBI [Suspect]
     Active Substance: LECANEMAB-IRMB
     Indication: Dementia Alzheimer^s type
     Dosage: DOSE UNKNOWN
     Dates: start: 20250108
  2. AMOXICILLIN [Concomitant]
     Active Substance: AMOXICILLIN
  3. ALBUTEROL [Concomitant]
     Active Substance: ALBUTEROL
  4. ALLOPURINOL [Concomitant]
     Active Substance: ALLOPURINOL
  5. AMLODIPINE [Concomitant]
     Active Substance: AMLODIPINE BESYLATE
  6. DORZOLAMIDE [Concomitant]
     Active Substance: DORZOLAMIDE
  7. ARNUITY ELLIPTA [Concomitant]
     Active Substance: FLUTICASONE FUROATE
  8. BUDESONIDE [Concomitant]
     Active Substance: BUDESONIDE
  9. GABAPENTIN [Concomitant]
     Active Substance: GABAPENTIN
  10. GLIMEPIRIDE [Concomitant]
     Active Substance: GLIMEPIRIDE
  11. LATANOPROST [Concomitant]
     Active Substance: LATANOPROST
  12. LEVOTHYROXINE [Concomitant]
     Active Substance: LEVOTHYROXINE
  13. MAGNESIUM [Concomitant]
     Active Substance: MAGNESIUM
  14. SYMBICORT [Concomitant]
     Active Substance: BUDESONIDE\FORMOTEROL FUMARATE DIHYDRATE
  15. TIMOLOL [Concomitant]
     Active Substance: TIMOLOL
  16. TRESIBA [Concomitant]
     Active Substance: INSULIN DEGLUDEC
  17. VALSARTAN [Concomitant]
     Active Substance: VALSARTAN
  18. FLAXSEED [Concomitant]
     Active Substance: FLAX SEED
  19. IRON [Concomitant]
     Active Substance: IRON
  20. XYZAL [Concomitant]
     Active Substance: LEVOCETIRIZINE DIHYDROCHLORIDE
  21. OZEMPIC [Concomitant]
     Active Substance: SEMAGLUTIDE

REACTIONS (9)
  - Pyrexia [Unknown]
  - Chills [Recovered/Resolved]
  - Asthenia [Recovered/Resolved]
  - Vomiting [Unknown]
  - Dry mouth [Recovered/Resolved]
  - Headache [Recovered/Resolved]
  - Dizziness [Recovered/Resolved]
  - Diarrhoea [Unknown]
  - Nausea [Unknown]

NARRATIVE: CASE EVENT DATE: 20250108
